FAERS Safety Report 9223353 (Version 1)
Quarter: 2013Q2

REPORT INFORMATION
  Report Type: Spontaneous
  Country: GB (occurrence: GB)
  Receive Date: 20130410
  Receipt Date: 20130410
  Transmission Date: 20140414
  Serious: Yes (Disabling)
  Sender: FDA-Public Use
  Company Number: GB-TEVA-396184ISR

PATIENT
  Age: 19 Year
  Sex: Female
  Weight: 55 kg

DRUGS (3)
  1. TRIMETHOPRIM [Suspect]
     Indication: URINARY TRACT INFECTION
     Route: 048
     Dates: start: 20130228, end: 20130304
  2. MICROGYNON [Concomitant]
  3. PENICILLIN V POTASSIUM [Concomitant]

REACTIONS (8)
  - Mouth haemorrhage [Recovered/Resolved with Sequelae]
  - Mouth ulceration [Recovering/Resolving]
  - Dry mouth [Unknown]
  - Lip pain [Unknown]
  - Cheilitis [Unknown]
  - Gingival pain [Unknown]
  - Gingival erythema [Unknown]
  - Oral mucosal blistering [Unknown]
